FAERS Safety Report 17393697 (Version 1)
Quarter: 2020Q1

REPORT INFORMATION
  Report Type: Spontaneous
  Country: ES (occurrence: ES)
  Receive Date: 20200209
  Receipt Date: 20200209
  Transmission Date: 20200409
  Serious: Yes (Hospitalization)
  Sender: FDA-Public Use
  Company Number: NVSC2020ES027381

PATIENT
  Age: 20 Year
  Sex: Female

DRUGS (4)
  1. LORMETAZEPAM [Interacting]
     Active Substance: LORMETAZEPAM
     Indication: INTENTIONAL OVERDOSE
     Dosage: 21 MG, ONCE/SINGLE
     Route: 048
     Dates: start: 20190804, end: 20190804
  2. OLANZAPINE. [Suspect]
     Active Substance: OLANZAPINE
     Indication: INTENTIONAL OVERDOSE
     Dosage: 210 MG, ONCE/SINGLE
     Route: 048
     Dates: start: 20190804, end: 20190804
  3. ETUMINA [Concomitant]
     Active Substance: CLOTHIAPINE
     Indication: DEPRESSION
     Dosage: 40 MG
     Route: 048
     Dates: start: 201907, end: 20190803
  4. VENLAFAXINA [Concomitant]
     Active Substance: VENLAFAXINE HYDROCHLORIDE
     Indication: DEPRESSION
     Dosage: 150 MG, QD
     Route: 048
     Dates: start: 201907, end: 20190803

REACTIONS (2)
  - Intentional overdose [Recovered/Resolved]
  - Depressed level of consciousness [Recovered/Resolved]

NARRATIVE: CASE EVENT DATE: 20190804
